FAERS Safety Report 6593910-0 (Version None)
Quarter: 2010Q1

REPORT INFORMATION
  Report Type: 
  Country: None (occurrence: None)
  Receive Date: 20100222
  Receipt Date: 20100210
  Transmission Date: 20100710
  Serious: Yes (Other)
  Sender: FDA-Public Use
  Company Number: PHHY2010JP07742

PATIENT
  Age: 94 Year
  Sex: Male

DRUGS (1)
  1. GLEEVEC [Suspect]
     Indication: CHRONIC MYELOID LEUKAEMIA
     Dosage: 200 MG/DAY
     Route: 048

REACTIONS (5)
  - CARDIAC FAILURE [None]
  - CARDIAC VALVE DISEASE [None]
  - DYSPNOEA [None]
  - OEDEMA [None]
  - PLEURAL EFFUSION [None]
